FAERS Safety Report 4528744-1 (Version None)
Quarter: 2004Q4

REPORT INFORMATION
  Report Type: 
  Country: None (occurrence: None)
  Receive Date: 20041214
  Receipt Date: 20041129
  Transmission Date: 20050328
  Serious: Yes (Other)
  Sender: FDA-Public Use
  Company Number: GB-2004-035981

PATIENT
  Age: 32 Year
  Sex: Female
  Weight: 45 kg

DRUGS (2)
  1. YASMIN [Suspect]
     Indication: ORAL CONTRACEPTION
     Dosage: 1 TAB(S) , 1X/DAY, ORAL
     Route: 048
     Dates: start: 20040413
  2. PROCTOSEDYL SUPPOSITORY ^ROCHE^ (ESCULOSIDE, BENZOCAINE, HYDROCORTISON [Concomitant]

REACTIONS (3)
  - PHOTOSENSITIVITY ALLERGIC REACTION [None]
  - RASH PRURITIC [None]
  - URTICARIA [None]
